FAERS Safety Report 7979429-0 (Version None)
Quarter: 2011Q4

REPORT INFORMATION
  Report Type: 
  Country: None (occurrence: None)
  Receive Date: 20111209
  Receipt Date: 20111128
  Transmission Date: 20120403
  Serious: Yes (Hospitalization, Congenital Anomaly)
  Sender: FDA-Public Use
  Company Number: DSA_47439_2011

PATIENT
  Sex: Male

DRUGS (13)
  1. AMBIEN [Concomitant]
  2. METOCLOPRAMIDE [Concomitant]
  3. WELLBUTRIN [Suspect]
     Indication: PRODUCT USED FOR UNKNOWN INDICATION
     Dosage: DF TRANSPLACENTAL
     Route: 064
  4. MIGRAZONE [Concomitant]
  5. PROMETHAZINE [Concomitant]
  6. KETEK [Concomitant]
  7. ICAR-C [Concomitant]
  8. LACTULOSE [Concomitant]
  9. EPIDRIN [Concomitant]
  10. ZELNORM [Concomitant]
  11. ZYRTEC [Concomitant]
  12. ALPRAZOLAM [Concomitant]
  13. APAP W/ CODEINE [Concomitant]

REACTIONS (47)
  - DYSPHAGIA [None]
  - FOOD AVERSION [None]
  - PNEUMONIA [None]
  - ANAEMIA NEONATAL [None]
  - OTITIS MEDIA CHRONIC [None]
  - DEAFNESS [None]
  - RESPIRATORY FAILURE [None]
  - GASTRIC VOLVULUS [None]
  - MENTAL RETARDATION [None]
  - ANXIETY [None]
  - PREMATURE BABY [None]
  - PATENT DUCTUS ARTERIOSUS [None]
  - HYPERTELORISM OF ORBIT [None]
  - EAR MALFORMATION [None]
  - FEEDING DISORDER NEONATAL [None]
  - DEHYDRATION [None]
  - AUTISM [None]
  - SURGERY [None]
  - SCAR [None]
  - DEFORMITY [None]
  - FOETAL GROWTH RESTRICTION [None]
  - CARDIAC FAILURE CONGESTIVE [None]
  - ANISOMETROPIA [None]
  - ASPIRATION [None]
  - MATERNAL DRUGS AFFECTING FOETUS [None]
  - HYPOTONIA [None]
  - MICROPENIS [None]
  - NUCLEAR MAGNETIC RESONANCE IMAGING BRAIN ABNORMAL [None]
  - COLITIS [None]
  - ECTOPIC KIDNEY [None]
  - DEVELOPMENTAL DELAY [None]
  - PAIN [None]
  - COUGH [None]
  - GASTROINTESTINAL HAEMORRHAGE [None]
  - GASTROOESOPHAGEAL REFLUX DISEASE [None]
  - HIP DYSPLASIA [None]
  - ATRIAL SEPTAL DEFECT [None]
  - DYSMORPHISM [None]
  - COGNITIVE DISORDER [None]
  - FAILURE TO THRIVE [None]
  - CRYPTORCHISM [None]
  - MULTIPLE CONGENITAL ABNORMALITIES [None]
  - SPEECH DISORDER DEVELOPMENTAL [None]
  - DELAYED FONTANELLE CLOSURE [None]
  - CONSTIPATION [None]
  - SLEEP APNOEA SYNDROME [None]
  - STARING [None]
